FAERS Safety Report 23228761 (Version 1)
Quarter: 2023Q4

REPORT INFORMATION
  Report Type: Spontaneous
  Country: US (occurrence: None)
  Receive Date: 20231126
  Receipt Date: 20231126
  Transmission Date: 20240109
  Serious: No
  Sender: FDA-Public Use
  Company Number: US-ROCHE-3187146

PATIENT
  Age: 62 Year
  Sex: Female

DRUGS (2)
  1. HERCEPTIN [Suspect]
     Active Substance: TRASTUZUMAB
     Indication: HER2 positive breast cancer
     Route: 041
     Dates: start: 20220223
  2. LEVOTHYROXINE [Concomitant]
     Active Substance: LEVOTHYROXINE
     Indication: Hypothyroidism
     Route: 048

REACTIONS (1)
  - Hypermetropia [Unknown]
